FAERS Safety Report 4952527-1 (Version None)
Quarter: 2006Q1

REPORT INFORMATION
  Report Type: 
  Country: None (occurrence: None)
  Receive Date: 20060317
  Receipt Date: 20060306
  Transmission Date: 20060701
  Serious: Yes (Life-Threatening)
  Sender: FDA-Public Use
  Company Number: 2006021480

PATIENT
  Age: 59 Year
  Sex: Male
  Weight: 63 kg

DRUGS (11)
  1. DOXORUBICIN HCL [Suspect]
     Indication: NON-HODGKIN'S LYMPHOMA
     Dosage: 85 MG, DAY 1, CYCLIC, INTRAVENOUS
     Route: 042
     Dates: start: 19980515, end: 19980715
  2. CYCLOPHOSPHAMIDE [Suspect]
     Indication: NON-HODGKIN'S LYMPHOMA
     Dosage: 4500 MG/M2 (1200 MG, DAY 1, CYCLIC), INTRAVENOUS; 4500 MG/M*2, CYCLICAL), INTRAVENOUS
     Route: 042
     Dates: start: 19980515, end: 19980815
  3. CYCLOPHOSPHAMIDE [Suspect]
     Indication: NON-HODGKIN'S LYMPHOMA
     Dosage: 4500 MG/M2 (1200 MG, DAY 1, CYCLIC), INTRAVENOUS; 4500 MG/M*2, CYCLICAL), INTRAVENOUS
     Route: 042
     Dates: start: 19980815
  4. ETOPOSIDE [Suspect]
     Indication: NON-HODGKIN'S LYMPHOMA
     Dosage: 450 MG/M*2, CYCLICAL), INTRAVENOUS
     Route: 042
     Dates: start: 19980815, end: 19980815
  5. MITOXANTRONE [Suspect]
     Indication: NON-HODGKIN'S LYMPHOMA
     Dosage: (18 MG; 12 MG DAY 1, CYCLIC), INTRAVENOUS
     Route: 042
     Dates: start: 20001016, end: 20001201
  6. MITOXANTRONE [Suspect]
     Indication: NON-HODGKIN'S LYMPHOMA
     Dosage: (18 MG; 12 MG DAY 1, CYCLIC), INTRAVENOUS
     Route: 042
     Dates: end: 20010314
  7. FLUDARABINE PHOSPHATE [Suspect]
     Dosage: (45 MG; 30 MG, DAY 1, 2 AND 3, CYCLIC), INTRAVENOUS
     Route: 042
     Dates: start: 20001016, end: 20001201
  8. FLUDARABINE PHOSPHATE [Suspect]
     Dosage: (45 MG; 30 MG, DAY 1, 2 AND 3, CYCLIC), INTRAVENOUS
     Route: 042
     Dates: end: 20010314
  9. RITUXIMAB (RITUXIMAB) [Suspect]
     Indication: NON-HODGKIN'S LYMPHOMA
     Dosage: 700 MG (DAY 1 CYCLIC), INTRAVENOUIS
     Route: 042
     Dates: start: 20001016, end: 20001201
  10. ONCOVIN [Concomitant]
  11. CORTANCYL (PREDNISONE) [Concomitant]

REACTIONS (4)
  - ANAEMIA [None]
  - GASTRIC CANCER [None]
  - INFLAMMATION [None]
  - METASTASES TO PERITONEUM [None]
